FAERS Safety Report 8760379 (Version 5)
Quarter: 2012Q4

REPORT INFORMATION
  Report Type: Spontaneous
  Country: US (occurrence: None)
  Receive Date: 20120817
  Receipt Date: 20120914
  Transmission Date: 20130627
  Serious: Yes (Death, Hospitalization)
  Sender: FDA-Public Use
  Company Number: 2012SGN00286

PATIENT
  Age: 65 Year
  Sex: Female
  Weight: 91.3 kg

DRUGS (5)
  1. BRENTUXIMAB VEDOTIN [Suspect]
     Indication: HODGKIN^S LYMPHOMA
     Route: 042
     Dates: start: 20120613, end: 20120613
  2. BRENTUXIMAB VEDOTIN [Suspect]
     Indication: HODGKIN^S LYMPHOMA
     Route: 042
     Dates: start: 20110811, end: 20110811
  3. BRENTUXIMAB VEDOTIN [Suspect]
     Indication: HODGKIN^S LYMPHOMA
     Route: 042
     Dates: start: 2011
  4. BRENTUXIMAB VEDOTIN [Suspect]
     Indication: HODGKIN^S LYMPHOMA
     Route: 042
  5. BRENTUXIMAB VEDOTIN [Suspect]
     Indication: HODGKIN^S LYMPHOMA
     Route: 042
     Dates: start: 20120420, end: 20120420

REACTIONS (17)
  - Metabolic encephalopathy [None]
  - Somnolence [None]
  - Confusional state [None]
  - Arthralgia [None]
  - Pyrexia [None]
  - Night sweats [None]
  - Blood bilirubin increased [None]
  - Blood alkaline phosphatase increased [None]
  - CSF protein increased [None]
  - Lethargy [None]
  - Idiopathic thrombocytopenic purpura [None]
  - Clostridium test positive [None]
  - Respiratory failure [None]
  - Pulmonary haemorrhage [None]
  - Bronchopulmonary aspergillosis [None]
  - Aspartate aminotransferase increased [None]
  - Alanine aminotransferase increased [None]
